FAERS Safety Report 6940842-1 (Version None)
Quarter: 2010Q3

REPORT INFORMATION
  Report Type: 
  Country: None (occurrence: None)
  Receive Date: 20100825
  Receipt Date: 20100816
  Transmission Date: 20110219
  Serious: Yes (Disabling)
  Sender: FDA-Public Use
  Company Number: GXKR2010RS09173

PATIENT
  Weight: 3.55 kg

DRUGS (7)
  1. AMIODARONE HCL [Suspect]
     Indication: TACHYCARDIA FOETAL
     Dosage: MATERNAL DOSE: 1200 MG, QD
     Route: 064
  2. AMIODARONE HCL [Suspect]
     Indication: NODAL ARRHYTHMIA
     Dosage: MATERNAL DOSE: 800 MG, QD
     Route: 064
  3. AMIODARONE HCL [Suspect]
     Dosage: MATERNAL DOSE: 200 MG, QD
     Route: 064
  4. AMIODARONE HCL [Suspect]
     Dosage: 50 MG, QD
     Route: 065
  5. AMIODARONE HCL [Suspect]
     Dosage: 100 MG, QD
     Route: 065
  6. DIGOXIN [Concomitant]
     Indication: FOETAL ARRHYTHMIA
     Route: 064
  7. PROPRANOLOL [Concomitant]
     Indication: NODAL ARRHYTHMIA

REACTIONS (8)
  - ATAXIA [None]
  - DEVELOPMENTAL DELAY [None]
  - DRUG EXPOSURE DURING PREGNANCY [None]
  - FOOT DEFORMITY [None]
  - HYPOTONIA [None]
  - MOTOR DEVELOPMENTAL DELAY [None]
  - NEURODEVELOPMENTAL DISORDER [None]
  - SPEECH DISORDER DEVELOPMENTAL [None]
